FAERS Safety Report 14788184 (Version 3)
Quarter: 2018Q2

REPORT INFORMATION
  Report Type: Report from Study
  Country: None (occurrence: TN)
  Receive Date: 20180422
  Receipt Date: 20180509
  Transmission Date: 20180711
  Serious: Yes (Hospitalization)
  Sender: FDA-Public Use
  Company Number: TN-ABBVIE-18K-160-2325347-00

PATIENT
  Age: 62 Year
  Sex: Female
  Weight: 65 kg

DRUGS (7)
  1. TRI B [Concomitant]
     Indication: MULTIPLE SCLEROSIS
     Dates: start: 2010
  2. HUMIRA [Suspect]
     Active Substance: ADALIMUMAB
     Indication: CROHN^S DISEASE
     Route: 058
     Dates: start: 2014, end: 2017
  3. HUMIRA [Suspect]
     Active Substance: ADALIMUMAB
     Route: 058
     Dates: start: 2017
  4. VITAMIN E [Concomitant]
     Active Substance: .ALPHA.-TOCOPHEROL
     Indication: MULTIPLE SCLEROSIS
     Dates: start: 2010
  5. TAVER [Concomitant]
     Indication: MULTIPLE SCLEROSIS
     Dates: start: 2010
  6. STEROGYL [Concomitant]
     Active Substance: ERGOCALCIFEROL
     Indication: MULTIPLE SCLEROSIS
     Dates: start: 2010
  7. CALPEROS [Concomitant]
     Active Substance: CALCIUM CARBONATE
     Indication: MULTIPLE SCLEROSIS
     Dates: start: 2010

REACTIONS (4)
  - Faecal calprotectin abnormal [Unknown]
  - Diarrhoea [Recovering/Resolving]
  - Mycobacterium tuberculosis complex test positive [Unknown]
  - Multiple sclerosis relapse [Recovered/Resolved]

NARRATIVE: CASE EVENT DATE: 2017
